FAERS Safety Report 5248055-9 (Version None)
Quarter: 2007Q1

REPORT INFORMATION
  Report Type: 
  Country: None (occurrence: None)
  Receive Date: 20070227
  Receipt Date: 20070222
  Transmission Date: 20070707
  Serious: Yes (Hospitalization)
  Sender: FDA-Public Use
  Company Number: FR-BRISTOL-MYERS SQUIBB COMPANY-13690003

PATIENT
  Age: 84 Year
  Sex: Female

DRUGS (7)
  1. SINEMET CR [Suspect]
     Indication: PARKINSON'S DISEASE
     Route: 048
     Dates: end: 20061107
  2. BI-TILDIEM [Suspect]
     Dates: end: 20061107
  3. PROZAC [Suspect]
     Dates: end: 20061107
  4. LASIX [Suspect]
     Dates: end: 20061107
  5. DIFFU-K [Concomitant]
  6. HEMIGOXINE NATIVELLE [Concomitant]
  7. PREVISCAN [Concomitant]
     Dosage: 1/4 TAB IN ALTERANCE WITH 1/2 TAB EVERY OTHER DAY

REACTIONS (3)
  - ORTHOSTATIC HYPOTENSION [None]
  - PERSONALITY CHANGE [None]
  - RESPIRATORY DEPRESSION [None]
